FAERS Safety Report 24420183 (Version 2)
Quarter: 2024Q4

REPORT INFORMATION
  Report Type: Report from Study
  Country: US (occurrence: US)
  Receive Date: 20241010
  Receipt Date: 20241018
  Transmission Date: 20250114
  Serious: No
  Sender: ROCHE
  Company Number: US-ROCHE-3537692

PATIENT
  Age: 60 Year
  Sex: Male

DRUGS (1)
  1. CATHFLO ACTIVASE [Suspect]
     Active Substance: ALTEPLASE
     Indication: Acute left ventricular failure
     Dosage: DATE OF SERVICE: ?18/FEB/2024 20 MG VIAL.?19/FEB/2024 20 MG VIAL?20/FEB/2024  20 MG VIAL
     Route: 065

REACTIONS (2)
  - Off label use [Unknown]
  - No adverse event [Unknown]
